FAERS Safety Report 23764422 (Version 2)
Quarter: 2024Q2

REPORT INFORMATION
  Report Type: Spontaneous
  Country: US (occurrence: US)
  Receive Date: 20240420
  Receipt Date: 20240429
  Transmission Date: 20240716
  Serious: Yes (Death, Other)
  Sender: FDA-Public Use
  Company Number: US-AMGEN-USASP2024076735

PATIENT

DRUGS (4)
  1. SOTORASIB [Suspect]
     Active Substance: SOTORASIB
     Indication: Non-small cell lung cancer
     Dosage: 960 MILLIGRAM
     Route: 065
  2. SOTORASIB [Suspect]
     Active Substance: SOTORASIB
     Dosage: 720 MILLIGRAM
     Route: 065
  3. SOTORASIB [Suspect]
     Active Substance: SOTORASIB
     Dosage: 480 MILLIGRAM
     Route: 065
  4. SOTORASIB [Suspect]
     Active Substance: SOTORASIB
     Dosage: 240 MILLIGRAM
     Route: 065

REACTIONS (8)
  - Death [Fatal]
  - Non-small cell lung cancer metastatic [Unknown]
  - Hepatotoxicity [Unknown]
  - Pneumonitis [Unknown]
  - Toxicity to various agents [Unknown]
  - Therapy partial responder [Unknown]
  - Diarrhoea [Unknown]
  - Off label use [Unknown]
